FAERS Safety Report 21526209 (Version 1)
Quarter: 2022Q4

REPORT INFORMATION
  Report Type: Other
  Country: None (occurrence: FR)
  Receive Date: 20221031
  Receipt Date: 20221031
  Transmission Date: 20230113
  Serious: Yes (Death, Other)
  Sender: FDA-Public Use
  Company Number: FR-Nuvo Pharmaceuticals Inc-2134299

PATIENT
  Age: 51 Year
  Sex: Female

DRUGS (6)
  1. DIAZEPAM [Suspect]
     Active Substance: DIAZEPAM
     Indication: Product used for unknown indication
     Route: 065
  2. METHADONE [Suspect]
     Active Substance: METHADONE HYDROCHLORIDE
     Route: 065
  3. MORPHINE SULFATE [Suspect]
     Active Substance: MORPHINE SULFATE
     Route: 065
  4. LYRICA [Suspect]
     Active Substance: PREGABALIN
     Route: 065
  5. QUETIAPINE [Suspect]
     Active Substance: QUETIAPINE
     Route: 065
  6. CODEINE SULFATE [Suspect]
     Active Substance: CODEINE SULFATE
     Route: 065

REACTIONS (3)
  - Cardiopulmonary failure [Fatal]
  - Toxicity to various agents [Fatal]
  - Drug abuse [Fatal]
